FAERS Safety Report 18351349 (Version 3)
Quarter: 2020Q4

REPORT INFORMATION
  Report Type: Spontaneous
  Country: US (occurrence: US)
  Receive Date: 20201006
  Receipt Date: 20201124
  Transmission Date: 20210114
  Serious: Yes (Other)
  Sender: FDA-Public Use
  Company Number: US-BAYER-2020-213202

PATIENT
  Age: 79 Year
  Sex: Female

DRUGS (1)
  1. ASPIRIN (PAIN AND FEVER) [Suspect]
     Active Substance: ASPIRIN
     Dosage: 1 DF
     Route: 048

REACTIONS (3)
  - Cardiac arrest [Recovered/Resolved]
  - Drug hypersensitivity [Recovered/Resolved]
  - Renal disorder [Unknown]
